FAERS Safety Report 23662591 (Version 1)
Quarter: 2024Q1

REPORT INFORMATION
  Report Type: Spontaneous
  Country: US (occurrence: US)
  Receive Date: 20240322
  Receipt Date: 20240322
  Transmission Date: 20240410
  Serious: Yes (Other)
  Sender: FDA-Public Use
  Company Number: US-TEVA-VS-3173387

PATIENT
  Age: 45 Year
  Sex: Male

DRUGS (2)
  1. UZEDY [Suspect]
     Active Substance: RISPERIDONE
     Indication: Schizophrenia
     Dosage: 50/0.14 MG/ML
     Route: 065
     Dates: start: 202402
  2. CLONAZEPAM [Concomitant]
     Active Substance: CLONAZEPAM
     Route: 065

REACTIONS (1)
  - Hallucination, auditory [Recovered/Resolved]

NARRATIVE: CASE EVENT DATE: 20240301
